FAERS Safety Report 8965661 (Version 1)
Quarter: 2012Q4

REPORT INFORMATION
  Report Type: Spontaneous
  Country: US (occurrence: None)
  Receive Date: 20121212
  Receipt Date: 20121212
  Transmission Date: 20130627
  Serious: Yes (Hospitalization)
  Sender: FDA-Public Use
  Company Number: None

PATIENT
  Age: 78 Year
  Sex: Female

DRUGS (1)
  1. ADCIRCA [Suspect]
     Indication: PRIMARY PULMONARY HYPERTENSION
     Dosage: 40mg Daily Oral
     Route: 048
     Dates: start: 20120919

REACTIONS (2)
  - Gastrointestinal haemorrhage [None]
  - Ulcer [None]
